FAERS Safety Report 21011055 (Version 2)
Quarter: 2022Q3

REPORT INFORMATION
  Report Type: Spontaneous
  Country: TR (occurrence: TR)
  Receive Date: 20220627
  Receipt Date: 20220714
  Transmission Date: 20221027
  Serious: Yes (Other)
  Sender: FDA-Public Use
  Company Number: TR-BAYER-2022A087874

PATIENT
  Sex: Female

DRUGS (5)
  1. GADOLINIUM [Suspect]
     Active Substance: GADOLINIUM
     Dosage: UNK, ONCE
     Dates: start: 202109, end: 202109
  2. GADOLINIUM [Suspect]
     Active Substance: GADOLINIUM
     Dosage: UNK, ONCE
  3. GADOLINIUM [Suspect]
     Active Substance: GADOLINIUM
     Dosage: UNK, ONCE
  4. GADOLINIUM [Suspect]
     Active Substance: GADOLINIUM
     Dosage: UNK, ONCE
  5. GADOLINIUM [Suspect]
     Active Substance: GADOLINIUM
     Dosage: UNK, ONCE

REACTIONS (2)
  - Renal failure [None]
  - Multiple organ dysfunction syndrome [None]
